FAERS Safety Report 9387476 (Version 3)
Quarter: 2014Q4

REPORT INFORMATION
  Report Type: Spontaneous
  Country: US (occurrence: None)
  Receive Date: 20130702
  Receipt Date: 20141014
  Transmission Date: 20150529
  Serious: Yes (Other)
  Sender: FDA-Public Use
  Company Number: 2013P1010617

PATIENT
  Age: 42 Year
  Sex: Female

DRUGS (2)
  1. INFUMORPH [Suspect]
     Active Substance: MORPHINE SULFATE
     Indication: MUSCLE SPASTICITY
     Dosage: 630MCG (2 MILLIGRAM/MILLILITERS, 1 IN 1D)
     Route: 037
  2. COMPOUNDED BACLOFEN [Suspect]
     Active Substance: BACLOFEN
     Indication: MUSCLE SPASTICITY
     Route: 037

REACTIONS (4)
  - Pain [None]
  - Muscle spasms [None]
  - Fall [None]
  - Head injury [None]

NARRATIVE: CASE EVENT DATE: 20121101
